FAERS Safety Report 7833258-7 (Version None)
Quarter: 2011Q4

REPORT INFORMATION
  Report Type: 
  Country: None (occurrence: None)
  Receive Date: 20111024
  Receipt Date: 20111015
  Transmission Date: 20120403
  Serious: Yes (Disabling, Other)
  Sender: FDA-Public Use
  Company Number: ES-JNJFOC-20111007827

PATIENT
  Age: 76 Year
  Sex: Male

DRUGS (11)
  1. FINASTERIDE [Concomitant]
     Indication: ILL-DEFINED DISORDER
     Route: 065
  2. IPRATROPIUM BROMIDE [Concomitant]
     Indication: ILL-DEFINED DISORDER
     Route: 065
  3. BUPRENORPHINE [Concomitant]
     Indication: ILL-DEFINED DISORDER
     Route: 065
  4. DILTIAZEM HCL [Concomitant]
     Indication: ILL-DEFINED DISORDER
     Route: 065
  5. CORTICOSTEROIDS [Concomitant]
     Indication: ILL-DEFINED DISORDER
     Route: 065
  6. NSAIDS [Concomitant]
     Indication: ILL-DEFINED DISORDER
     Route: 065
  7. FENTANYL [Suspect]
     Indication: PAIN MANAGEMENT
     Route: 062
  8. OMEPRAZOLE [Concomitant]
     Indication: ILL-DEFINED DISORDER
     Route: 065
  9. FUROSEMIDE [Concomitant]
     Indication: ILL-DEFINED DISORDER
     Route: 065
  10. ACETAMINOPHEN [Concomitant]
     Indication: ILL-DEFINED DISORDER
     Route: 065
  11. TAMSULOSIN HCL [Concomitant]
     Indication: ILL-DEFINED DISORDER
     Route: 065

REACTIONS (6)
  - EPILEPSY [None]
  - NEUROTOXICITY [None]
  - MUSCLE RIGIDITY [None]
  - IMPAIRED SELF-CARE [None]
  - DELIRIUM [None]
  - INADEQUATE ANALGESIA [None]
